FAERS Safety Report 20529030 (Version 7)
Quarter: 2025Q4

REPORT INFORMATION
  Report Type: Report from Study
  Country: IN (occurrence: IN)
  Receive Date: 20220228
  Receipt Date: 20251219
  Transmission Date: 20260117
  Serious: Yes (Hospitalization, Other)
  Sender: PFIZER
  Company Number: IN-PFIZER INC-202200292681

PATIENT
  Age: 37 Year
  Sex: Male

DRUGS (6)
  1. LORLATINIB [Suspect]
     Active Substance: LORLATINIB
     Indication: Non-small cell lung cancer metastatic
     Dosage: 100 MG, 1X/DAY
     Route: 048
     Dates: start: 201911
  2. LORLATINIB [Suspect]
     Active Substance: LORLATINIB
     Dosage: 75 MG, 1X/DAY
     Route: 048
  3. PEMETREXED [Concomitant]
     Active Substance: PEMETREXED
     Indication: Non-small cell lung cancer metastatic
     Dosage: UNK UNK, EVERY 3 WEEKS
     Dates: start: 20241231
  4. CARBOPLATIN [Concomitant]
     Active Substance: CARBOPLATIN
     Indication: Non-small cell lung cancer metastatic
     Dosage: UNK UNK, EVERY 3 WEEKS
     Dates: start: 20241231
  5. SYSTAFLAM [CHLORZOXAZONE;DICLOFENAC SODIUM;PARACETAMOL] [Concomitant]
     Dosage: 1-, 2X/DAY
     Route: 061
  6. PREGABA-M [Concomitant]
     Dosage: 75 MG, 1X/DAY
     Route: 048

REACTIONS (16)
  - Bone lesion [Unknown]
  - Soft tissue injury [Unknown]
  - Metastases to pleura [Unknown]
  - Metastases to soft tissue [Unknown]
  - Non-small cell lung cancer metastatic [Unknown]
  - Malignant neoplasm progression [Unknown]
  - Nephrolithiasis [Unknown]
  - Hepatitis C [Unknown]
  - Hepatic enzyme abnormal [Unknown]
  - Nausea [Unknown]
  - Vomiting [Unknown]
  - Dizziness [Unknown]
  - Accident [Unknown]
  - Gait disturbance [Unknown]
  - Pain [Unknown]
  - Intentional dose omission [Unknown]

NARRATIVE: CASE EVENT DATE: 20210101
